FAERS Safety Report 9538866 (Version 2)
Quarter: 2013Q4

REPORT INFORMATION
  Report Type: Spontaneous
  Country: US (occurrence: US)
  Receive Date: 20130920
  Receipt Date: 20131206
  Transmission Date: 20140711
  Serious: Yes (Hospitalization)
  Sender: FDA-Public Use
  Company Number: US-BAYER-2013-113875

PATIENT
  Age: 25 Year
  Sex: Female
  Weight: 62.13 kg

DRUGS (10)
  1. MIRENA [Suspect]
     Indication: CONTRACEPTION
     Dosage: 20 MCG/24HR, CONT
     Route: 015
     Dates: start: 20110817, end: 20121009
  2. IMITREX [Concomitant]
     Indication: MIGRAINE
     Dosage: 25 MG, UNK
     Route: 048
     Dates: start: 20120924
  3. PENICILLIN V POTASSIUM [Concomitant]
     Dosage: 500 MG, UNK
     Route: 048
     Dates: start: 20120924
  4. PEPCID [Concomitant]
     Indication: DYSPEPSIA
     Dosage: 20 MG, UNK
     Route: 048
  5. PROZAC [Concomitant]
     Indication: ANXIETY
     Dosage: 10 MG, UNK
     Route: 048
  6. MOTRIN [Concomitant]
     Indication: PAIN
     Dosage: 600 MG, UNK
     Route: 048
  7. ATIVAN [Concomitant]
     Indication: ANXIETY
     Dosage: 0.5 MG, UNK
     Route: 048
  8. MACRODANTIN [Concomitant]
     Dosage: 100 MG, UNK
     Route: 048
  9. PRENATAL VITAMINS [VIT C,B5,B12,D2,B3,B6,RETINOL PALMIT,B2,B1 MONO [Concomitant]
     Dosage: UNK
     Route: 048
  10. SELENIUM SULFIDE [Concomitant]
     Dosage: 2.5 %, UNK
     Route: 061

REACTIONS (5)
  - Embedded device [None]
  - Injury [None]
  - Device dislocation [None]
  - Procedural pain [None]
  - Emotional distress [None]
